FAERS Safety Report 9751993 (Version 1)
Quarter: 2013Q4

REPORT INFORMATION
  Report Type: Spontaneous
  Country: US (occurrence: None)
  Receive Date: 20131211
  Receipt Date: 20131211
  Transmission Date: 20140711
  Serious: Yes (Hospitalization)
  Sender: FDA-Public Use
  Company Number: None

PATIENT
  Age: 81 Year
  Sex: Male
  Weight: 79 kg

DRUGS (15)
  1. WARFARIN [Suspect]
     Indication: ATRIAL FIBRILLATION
     Route: 048
  2. ASPIRIN 81MG [Suspect]
     Indication: ANTIPLATELET THERAPY
     Route: 048
  3. TAMSULOSIN [Concomitant]
  4. SPIRONOLACTONE [Concomitant]
  5. LISINOPRIL [Concomitant]
  6. FUROSEMIDE [Concomitant]
  7. CARVEDILOL [Concomitant]
  8. DONEPEZIL [Concomitant]
  9. PAROXETINE [Concomitant]
  10. RANITIDINE [Concomitant]
  11. DIGOXIN [Concomitant]
  12. OXYCODONE [Concomitant]
  13. MULTIVITAMIN [Concomitant]
  14. ASCORBIC ACID [Concomitant]
  15. ALBUTEROL/IPRATROPIUM [Concomitant]

REACTIONS (4)
  - Haematuria [None]
  - Hypotension [None]
  - Urinary bladder haemorrhage [None]
  - Post procedural haemorrhage [None]
